FAERS Safety Report 5706585-7 (Version None)
Quarter: 2008Q2

REPORT INFORMATION
  Report Type: 
  Country: None (occurrence: None)
  Receive Date: 20080415
  Receipt Date: 20080408
  Transmission Date: 20081010
  Serious: Yes (Hospitalization)
  Sender: FDA-Public Use
  Company Number: RU-BRISTOL-MYERS SQUIBB COMPANY-14058184

PATIENT
  Age: 61 Year
  Sex: Female

DRUGS (5)
  1. BLINDED: SAXAGLIPTIN [Suspect]
     Indication: TYPE 2 DIABETES MELLITUS
     Dosage: DOSAGE FORM = TABLET
     Route: 048
     Dates: start: 20070619, end: 20080213
  2. METFORMIN HCL [Suspect]
     Indication: TYPE 2 DIABETES MELLITUS
     Dosage: DOSAGE FORM = TABLET.(KIT 222654) 19JUN07-13FEB08(1TAB/D); (KIT 256742) 26JUN07 - 13FEB08(3TAB/D).
     Route: 048
     Dates: start: 20070626, end: 20080213
  3. BLINDED: PLACEBO [Suspect]
     Indication: TYPE 2 DIABETES MELLITUS
     Dosage: ALSO TAKEN ON 26JUN07-13FEB08.
     Route: 048
     Dates: start: 20070619, end: 20080213
  4. PIOGLITAZONE HCL [Concomitant]
     Dates: start: 20070109, end: 20080213
  5. HYPOTHIAZIDE [Concomitant]
     Dates: start: 20071220

REACTIONS (1)
  - DIABETES MELLITUS [None]
